FAERS Safety Report 5308710-9 (Version None)
Quarter: 2007Q2

REPORT INFORMATION
  Report Type: 
  Country: None (occurrence: None)
  Receive Date: 20070426
  Receipt Date: 20070419
  Transmission Date: 20071010
  Serious: Yes (Life-Threatening)
  Sender: FDA-Public Use
  Company Number: FR-GLAXOSMITHKLINE-B0467837A

PATIENT
  Age: 35 Year
  Sex: Male

DRUGS (1)
  1. AUGMENTIN '125' [Suspect]
     Dosage: 1G PER DAY
     Route: 048
     Dates: start: 20070218

REACTIONS (1)
  - ANAPHYLACTIC SHOCK [None]
